FAERS Safety Report 6337301-6 (Version None)
Quarter: 2009Q3

REPORT INFORMATION
  Report Type: 
  Country: None (occurrence: None)
  Receive Date: 20090828
  Receipt Date: 20090828
  Transmission Date: 20100115
  Serious: Yes (Hospitalization)
  Sender: FDA-Public Use
  Company Number: None

PATIENT
  Age: 63 Year
  Sex: Female

DRUGS (9)
  1. NIFEDIPINE [Suspect]
     Indication: HYPERTENSION
     Dosage: 30MG DAILY PO
     Route: 048
     Dates: start: 20090705, end: 20090715
  2. COLACE [Concomitant]
  3. CLONIDINE [Concomitant]
  4. LISINOPRIL [Concomitant]
  5. HYDROCHLOROTHIAZIDE [Concomitant]
  6. METOPROLOL [Concomitant]
  7. SERTRALINE HCL [Concomitant]
  8. PANTOPRAZOLE SODIUM [Concomitant]
  9. LOSARTAN [Concomitant]

REACTIONS (15)
  - ASTHENIA [None]
  - BALANCE DISORDER [None]
  - BEDRIDDEN [None]
  - BLOOD CREATININE INCREASED [None]
  - DISTURBANCE IN ATTENTION [None]
  - FATIGUE [None]
  - HYPOAESTHESIA [None]
  - HYPOPERFUSION [None]
  - HYPOPHAGIA [None]
  - HYPOTENSION [None]
  - LIVER FUNCTION TEST ABNORMAL [None]
  - MUSCULAR WEAKNESS [None]
  - NEUROLOGICAL SYMPTOM [None]
  - SIMILAR REACTION ON PREVIOUS EXPOSURE TO DRUG [None]
  - TINNITUS [None]
